FAERS Safety Report 13378973 (Version 1)
Quarter: 2017Q1

REPORT INFORMATION
  Report Type: Spontaneous
  Country: US (occurrence: US)
  Receive Date: 20170328
  Receipt Date: 20170328
  Transmission Date: 20170429
  Serious: No
  Sender: FDA-Public Use
  Company Number: US-ROCHE-GNE318839

PATIENT
  Sex: Male
  Weight: 37.04 kg

DRUGS (1)
  1. XOLAIR [Suspect]
     Active Substance: OMALIZUMAB
     Indication: PRODUCT USED FOR UNKNOWN INDICATION
     Dosage: 375 MG, Q2W
     Route: 058
     Dates: start: 201101

REACTIONS (5)
  - Arthralgia [Recovered/Resolved]
  - Rash [None]
  - Weight decreased [None]
  - Decreased appetite [None]
  - Diarrhoea [None]
